FAERS Safety Report 24384809 (Version 1)
Quarter: 2024Q4

REPORT INFORMATION
  Report Type: Spontaneous
  Country: US (occurrence: US)
  Receive Date: 20241001
  Receipt Date: 20241001
  Transmission Date: 20250114
  Serious: Yes (Other)
  Sender: BIOVITRUM
  Company Number: US-BIOVITRUM-2024-US-012446

PATIENT
  Sex: Female

DRUGS (3)
  1. EMAPALUMAB [Suspect]
     Active Substance: EMAPALUMAB
     Indication: Product used for unknown indication
     Dosage: A LITTLE OVER A WEEK AGO (LOADING DOSE 6 MG/KG AND MAINTENANCE DOSES 3 MG/KG).
  2. EMAPALUMAB [Suspect]
     Active Substance: EMAPALUMAB
     Dosage: A LITTLE OVER A WEEK AGO (LOADING DOSE 6 MG/KG AND MAINTENANCE DOSES 3 MG/KG).
  3. ANAKINRA [Suspect]
     Active Substance: ANAKINRA
     Indication: Product used for unknown indication
     Dosage: 5 MG/KG Q8 HOURS

REACTIONS (2)
  - Haemophagocytic lymphohistiocytosis [Unknown]
  - Condition aggravated [Unknown]
